FAERS Safety Report 18709367 (Version 1)
Quarter: 2021Q1

REPORT INFORMATION
  Report Type: Spontaneous
  Country: US (occurrence: US)
  Receive Date: 20210107
  Receipt Date: 20210107
  Transmission Date: 20210419
  Serious: Yes (Hospitalization, Other)
  Sender: FDA-Public Use
  Company Number: US-DRREDDYS-USA/USA/20/0130566

PATIENT
  Age: 63 Year
  Sex: Male

DRUGS (1)
  1. TACROLIMUS. [Suspect]
     Active Substance: TACROLIMUS
     Indication: IMMUNOSUPPRESSANT DRUG THERAPY

REACTIONS (6)
  - Cytomegalovirus viraemia [Unknown]
  - Diffuse large B-cell lymphoma stage IV [Unknown]
  - Metastases to lymph nodes [Unknown]
  - Post transplant lymphoproliferative disorder [Unknown]
  - Metastases to bone [Unknown]
  - Epstein-Barr viraemia [Unknown]
